FAERS Safety Report 7647559-9 (Version None)
Quarter: 2011Q3

REPORT INFORMATION
  Report Type: 
  Country: None (occurrence: None)
  Receive Date: 20110801
  Receipt Date: 20110724
  Transmission Date: 20111222
  Serious: Yes (Other)
  Sender: FDA-Public Use
  Company Number: TW-PFIZER INC-2011167812

PATIENT
  Sex: Female

DRUGS (9)
  1. GEODON [Suspect]
     Dosage: 40 MG, 2X/DAY
  2. GEODON [Suspect]
     Dosage: 60 MG, 3X/DAY
  3. QUETIAPINE [Suspect]
     Dosage: 600 MG, AS NEEDED
  4. QUETIAPINE [Suspect]
     Dosage: 100 MG, WEEKLY
  5. FLUOXETINE [Suspect]
     Dosage: 20 MG, 3X/DAY
  6. QUETIAPINE [Suspect]
     Dosage: 200 MG, 1 DAILY + 3 IN THE EVENING
  7. QUETIAPINE [Suspect]
     Dosage: 200 MG, 1 DAILY AND 3 IN THE EVENING
  8. GEODON [Suspect]
     Dosage: 40 MG, 1 TWICE DAILY AND IN THE EVENING
  9. GEODON [Suspect]
     Dosage: 40 MG, 3X/DAY

REACTIONS (12)
  - POOR QUALITY SLEEP [None]
  - UPPER RESPIRATORY TRACT INFECTION [None]
  - OBSESSIVE-COMPULSIVE DISORDER [None]
  - SOMNOLENCE [None]
  - DISTURBANCE IN ATTENTION [None]
  - LAZINESS [None]
  - TENSION [None]
  - ANXIETY [None]
  - FATIGUE [None]
  - DEPRESSED LEVEL OF CONSCIOUSNESS [None]
  - DECREASED APPETITE [None]
  - APATHY [None]
